FAERS Safety Report 4623835-9 (Version None)
Quarter: 2005Q1

REPORT INFORMATION
  Report Type: 
  Country: None (occurrence: None)
  Receive Date: 20050329
  Receipt Date: 20050329
  Transmission Date: 20050727
  Serious: Yes (Death)
  Sender: FDA-Public Use
  Company Number: None

PATIENT
  Age: 39 Year
  Sex: Female

DRUGS (7)
  1. NEURONTIN [Suspect]
     Indication: MIGRAINE
     Dosage: 1800MG DAILY, ORAL
     Route: 048
     Dates: start: 19950101, end: 20020101
  2. NEURONTIN [Suspect]
     Indication: MOVEMENT DISORDER
     Dosage: 1800MG DAILY, ORAL
     Route: 048
     Dates: start: 19950101, end: 20020101
  3. PROPOXYPHENE HCL [Concomitant]
  4. ALLEGRA [Concomitant]
  5. NORTRIPTYLINE HYDROCHLORIDE [Concomitant]
  6. CLONAZEPAM [Concomitant]
  7. AMITHRIPTYCLINE [Concomitant]

REACTIONS (2)
  - COMPLETED SUICIDE [None]
  - GUN SHOT WOUND [None]
